FAERS Safety Report 14678776 (Version 1)
Quarter: 2018Q1

REPORT INFORMATION
  Report Type: Spontaneous
  Country: MY (occurrence: MY)
  Receive Date: 20180326
  Receipt Date: 20180326
  Transmission Date: 20180509
  Serious: Yes (Hospitalization)
  Sender: FDA-Public Use
  Company Number: MY-MANKIND-000053

PATIENT
  Age: 61 Year
  Sex: Female

DRUGS (2)
  1. OLANZAPINE. [Interacting]
     Active Substance: OLANZAPINE
     Indication: SCHIZOPHRENIA
  2. RISPERIDONE. [Suspect]
     Active Substance: RISPERIDONE
     Indication: SCHIZOPHRENIA
     Dosage: INCREASED TO A DOSE OF 2 MG OVER?2 DAYS
     Route: 048

REACTIONS (2)
  - Drug interaction [Unknown]
  - Leukopenia [Recovered/Resolved]
